FAERS Safety Report 8537854-3 (Version None)
Quarter: 2012Q3

REPORT INFORMATION
  Report Type: 
  Country: None (occurrence: None)
  Receive Date: 20120725
  Receipt Date: 20120712
  Transmission Date: 20120928
  Serious: No
  Sender: FDA-Public Use
  Company Number: US-ASTRAZENECA-2012SE48691

PATIENT
  Age: 39 Year
  Sex: Male

DRUGS (6)
  1. SEROQUEL XR [Suspect]
     Indication: DEPRESSION
     Route: 048
  2. LITHIUM CARBONATE [Concomitant]
  3. SEROQUEL XR [Suspect]
     Indication: BIPOLAR II DISORDER
     Route: 048
  4. SEROQUEL XR [Suspect]
     Indication: PANIC DISORDER
     Route: 048
  5. SEROQUEL XR [Suspect]
     Indication: ANXIETY
     Route: 048
  6. ANTIDEPRESSANT [Concomitant]

REACTIONS (4)
  - FATIGUE [None]
  - SOMNOLENCE [None]
  - AFFECTIVE DISORDER [None]
  - MALAISE [None]
